FAERS Safety Report 16589221 (Version 2)
Quarter: 2019Q3

REPORT INFORMATION
  Report Type: Spontaneous
  Country: PL (occurrence: PL)
  Receive Date: 20190718
  Receipt Date: 20190723
  Transmission Date: 20191004
  Serious: Yes (Other)
  Sender: FDA-Public Use
  Company Number: PL-GLAXOSMITHKLINE-PL2019129700

PATIENT
  Age: 69 Year
  Sex: Female

DRUGS (3)
  1. PLAVIX [Suspect]
     Active Substance: CLOPIDOGREL BISULFATE
     Indication: PERIPHERAL ARTERY ANGIOPLASTY
     Dosage: 75 MG, UNK
     Route: 048
     Dates: end: 20151129
  2. DICLOFENAC [Suspect]
     Active Substance: DICLOFENAC
     Indication: PERIPHERAL ARTERY ANGIOPLASTY
     Dosage: 0,15
     Route: 048
     Dates: end: 20151129
  3. POLOCARD [Suspect]
     Active Substance: ASPIRIN
     Indication: PERIPHERAL ARTERY ANGIOPLASTY
     Dosage: 150 MG, UNK
     Route: 048
     Dates: end: 20151129

REACTIONS (3)
  - Gastrointestinal haemorrhage [Recovering/Resolving]
  - Haematemesis [Recovering/Resolving]
  - Melaena [Recovering/Resolving]

NARRATIVE: CASE EVENT DATE: 20151129
